FAERS Safety Report 6267984-0 (Version None)
Quarter: 2009Q3

REPORT INFORMATION
  Report Type: 
  Country: None (occurrence: None)
  Receive Date: 20090713
  Receipt Date: 20090629
  Transmission Date: 20100115
  Serious: Yes (Other)
  Sender: FDA-Public Use
  Company Number: 230217M09USA

PATIENT
  Age: 37 Year
  Sex: Female

DRUGS (7)
  1. REBIF [Suspect]
     Indication: MULTIPLE SCLEROSIS
     Dosage: 44 NOT REPORTED, 3 IN 1 WEEKS, SUBCUTANEOUS
     Route: 058
     Dates: start: 20080305, end: 20090413
  2. CYMBALTA [Suspect]
     Dosage: 60 NOT REPORTED, 1 IN 1 DAYS, ORAL
     Route: 048
     Dates: end: 20090424
  3. GABAPENTIN [Suspect]
     Dosage: 400 NOT REPORTED, 1 IN 1 DAYS, ORAL
     Route: 048
     Dates: end: 20090424
  4. SYNTHROID [Suspect]
     Dosage: 1 IN 1 DAYS, ORAL
     Route: 048
     Dates: end: 20090424
  5. AMBIEN [Suspect]
     Dosage: 10 NOT REPORTED, 1 IN 1 DAYS, ORAL
     Route: 048
     Dates: end: 20090424
  6. DULCOLAX [Suspect]
     Dates: end: 20090424
  7. IBUPROFEN [Suspect]
     Dates: end: 20090424

REACTIONS (2)
  - AUTOIMMUNE HEPATITIS [None]
  - HEPATIC NECROSIS [None]
